FAERS Safety Report 4355899-4 (Version None)
Quarter: 2004Q2

REPORT INFORMATION
  Report Type: 
  Country: None (occurrence: None)
  Receive Date: 20040505
  Receipt Date: 20040428
  Transmission Date: 20050107
  Serious: Yes (Death)
  Sender: FDA-Public Use
  Company Number: TCI2003A04508

PATIENT
  Age: 82 Year
  Sex: Male

DRUGS (16)
  1. LEUPROLIDE ACETATE [Suspect]
     Indication: PROSTATE CANCER
     Dosage: 3.75 MG (3.75 MG, 1 IN 28 D) SUBCUTANEOUS
     Route: 058
     Dates: start: 20000801, end: 20030901
  2. LANSOPRAZOLE [Concomitant]
  3. TAMSULOSIN HYDROCHLORIDE (CAPSULES) [Concomitant]
  4. CERNILTON (TABLETS) [Concomitant]
  5. MARZULENE S (GRANULATE) [Concomitant]
  6. AMBROXOL HYDROCHLORIDE (PREPARATION FOR ORAL USE (NOS)) [Concomitant]
  7. CAMOSTAT MESILATE (TABLETS) [Concomitant]
  8. BIOFERMIN (PREPARATION FOR ORAL USE (NOS)) [Concomitant]
  9. KETOPROFEN (POULTICE OR PATCH) [Concomitant]
  10. HACHIMIJIO-GAN (PREPARATION FOR ORAL USE (NOS)) [Concomitant]
  11. SENNA LEAF (TABLETS) [Concomitant]
  12. BUFFERIN /JPN/ (TABLETS) [Concomitant]
  13. NICORANDIL [Concomitant]
  14. WARFARIN SODIUM [Concomitant]
  15. TRIMEBUTINE MALEATE (PREPARATION FOR ORAL USE (NOS)) [Concomitant]
  16. DOMPERIDONE [Concomitant]

REACTIONS (2)
  - DYSPNOEA [None]
  - INTERSTITIAL LUNG DISEASE [None]
